FAERS Safety Report 17537878 (Version 1)
Quarter: 2020Q1

REPORT INFORMATION
  Report Type: Spontaneous
  Country: US (occurrence: US)
  Receive Date: 20200313
  Receipt Date: 20200313
  Transmission Date: 20200409
  Serious: Yes (Other)
  Sender: FDA-Public Use
  Company Number: US-PFIZER INC-2020107951

PATIENT
  Age: 35 Year
  Sex: Female
  Weight: 70.31 kg

DRUGS (2)
  1. ADVIL [Suspect]
     Active Substance: IBUPROFEN
     Indication: PAIN PROPHYLAXIS
  2. ADVIL [Suspect]
     Active Substance: IBUPROFEN
     Indication: ALCOHOLIC HANGOVER
     Dosage: 400 MG, (2 OF 200 MG)

REACTIONS (4)
  - Feeling abnormal [Unknown]
  - Expired product administered [Unknown]
  - Hallucination, visual [Unknown]
  - Palpitations [Unknown]
